FAERS Safety Report 14993618 (Version 1)
Quarter: 2018Q2

REPORT INFORMATION
  Report Type: Report from Study
  Country: None (occurrence: US)
  Receive Date: 20180611
  Receipt Date: 20180611
  Transmission Date: 20180711
  Serious: Yes (Hospitalization)
  Sender: FDA-Public Use
  Company Number: US-ABBVIE-18K-163-2361429-00

PATIENT
  Sex: Female
  Weight: 63.56 kg

DRUGS (2)
  1. HUMIRA [Suspect]
     Active Substance: ADALIMUMAB
     Indication: RHEUMATOID ARTHRITIS
     Route: 058
     Dates: end: 201712
  2. HUMIRA [Suspect]
     Active Substance: ADALIMUMAB
     Route: 058
     Dates: start: 201802

REACTIONS (5)
  - Post procedural cellulitis [Recovered/Resolved]
  - Poor peripheral circulation [Recovering/Resolving]
  - Osteoarthritis [Recovering/Resolving]
  - Ligament disorder [Recovering/Resolving]
  - Joint instability [Recovered/Resolved]

NARRATIVE: CASE EVENT DATE: 2017
